FAERS Safety Report 10023618 (Version 1)
Quarter: 2014Q1

REPORT INFORMATION
  Report Type: Spontaneous
  Country: US (occurrence: None)
  Receive Date: 20140304
  Receipt Date: 20140304
  Transmission Date: 20141002
  Serious: Yes (Other)
  Sender: FDA-Public Use
  Company Number: RB-59676-2013

PATIENT
  Age: 21 Year
  Sex: Male

DRUGS (2)
  1. SUBOXONE [Suspect]
     Indication: PRODUCT USED FOR UNKNOWN INDICATION
     Dosage: (DOSING FILM ; DOSING DETAILS UNKNOWN UNKNOWN)
  2. SUBOXONE [Suspect]
     Indication: PRODUCT USED FOR UNKNOWN INDICATION
     Dosage: SUBOXONE FILM ; DOSING DETAILS UNKNOWN UNKNOWN)

REACTIONS (5)
  - Hypersensitivity [None]
  - Urinary retention [None]
  - Rash erythematous [None]
  - Nausea [None]
  - Constipation [None]
